FAERS Safety Report 20125370 (Version 2)
Quarter: 2021Q4

REPORT INFORMATION
  Report Type: Spontaneous
  Country: US (occurrence: US)
  Receive Date: 20211129
  Receipt Date: 20211203
  Transmission Date: 20220303
  Serious: No
  Sender: FDA-Public Use
  Company Number: US-GW PHARMA-202111USGW05753

PATIENT

DRUGS (5)
  1. EPIDIOLEX [Suspect]
     Active Substance: CANNABIDIOL
     Indication: Epilepsy
     Dosage: 130 MILLIGRAM, BID FOR 1 WEEK
     Route: 048
     Dates: start: 202110, end: 2021
  2. EPIDIOLEX [Suspect]
     Active Substance: CANNABIDIOL
     Dosage: 250 MILLIGRAM, BID (SECOND WEEK)
     Route: 048
     Dates: start: 2021, end: 2021
  3. EPIDIOLEX [Suspect]
     Active Substance: CANNABIDIOL
     Dosage: 130 MILLIGRAM, BID
     Route: 048
     Dates: start: 2021
  4. EPIDIOLEX [Suspect]
     Active Substance: CANNABIDIOL
     Dosage: 130 MILLIGRAM, BID FOR ONE WEEK
     Route: 048
     Dates: start: 20211019
  5. EPIDIOLEX [Suspect]
     Active Substance: CANNABIDIOL
     Dosage: 250 MILLIGRAM, BID  (SECOND WEEK) THEREAFTER
     Route: 048
     Dates: start: 202110

REACTIONS (3)
  - Gait inability [Unknown]
  - Somnolence [Unknown]
  - Seizure [Unknown]

NARRATIVE: CASE EVENT DATE: 20210101
